FAERS Safety Report 16231954 (Version 2)
Quarter: 2020Q1

REPORT INFORMATION
  Report Type: Spontaneous
  Country: US (occurrence: US)
  Receive Date: 20190424
  Receipt Date: 20200217
  Transmission Date: 20200409
  Serious: Yes (Hospitalization, Other)
  Sender: FDA-Public Use
  Company Number: US-GLAXOSMITHKLINE-US2019AMR072173

PATIENT
  Age: 54 Year
  Sex: Female

DRUGS (2)
  1. ADVAIR DISKUS [Suspect]
     Active Substance: FLUTICASONE PROPIONATE\SALMETEROL XINAFOATE
     Indication: PRODUCT USED FOR UNKNOWN INDICATION
     Dosage: UNK
     Route: 055
  2. GABAPENTIN. [Suspect]
     Active Substance: GABAPENTIN
     Indication: PRODUCT USED FOR UNKNOWN INDICATION
     Dosage: UNK
     Route: 065

REACTIONS (11)
  - Apparent death [Recovered/Resolved]
  - Limb injury [Unknown]
  - Surgery [Unknown]
  - Rotator cuff repair [Unknown]
  - Fall [Recovering/Resolving]
  - Rotator cuff syndrome [Unknown]
  - Neck surgery [Unknown]
  - Pneumonia [Recovering/Resolving]
  - Shoulder operation [Unknown]
  - Road traffic accident [Unknown]
  - Exostosis [Unknown]

NARRATIVE: CASE EVENT DATE: 2016
